FAERS Safety Report 12544793 (Version 3)
Quarter: 2016Q4

REPORT INFORMATION
  Report Type: Spontaneous
  Country: GB (occurrence: GB)
  Receive Date: 20160711
  Receipt Date: 20161018
  Transmission Date: 20170207
  Serious: Yes (Death, Other)
  Sender: FDA-Public Use
  Company Number: GB-TEVA-673306ACC

PATIENT
  Sex: Female

DRUGS (7)
  1. FUROSEMIDE. [Suspect]
     Active Substance: FUROSEMIDE
     Route: 065
  2. RAMIPRIL. [Suspect]
     Active Substance: RAMIPRIL
     Route: 065
  3. LETROZOLE. [Suspect]
     Active Substance: LETROZOLE
     Route: 065
  4. METFORMIN [Suspect]
     Active Substance: METFORMIN HYDROCHLORIDE
     Route: 065
  5. SIMVASTATIN. [Suspect]
     Active Substance: SIMVASTATIN
     Route: 065
  6. BISOPROLOL [Suspect]
     Active Substance: BISOPROLOL
     Route: 065
  7. WARFARIN [Suspect]
     Active Substance: WARFARIN
     Route: 065

REACTIONS (4)
  - Death [Fatal]
  - Oedema [Unknown]
  - Hot flush [Unknown]
  - Cardiac arrest [Unknown]

NARRATIVE: CASE EVENT DATE: 2016
